FAERS Safety Report 6395909-6 (Version None)
Quarter: 2009Q4

REPORT INFORMATION
  Report Type: 
  Country: None (occurrence: None)
  Receive Date: 20091009
  Receipt Date: 20090824
  Transmission Date: 20100525
  Serious: No
  Sender: FDA-Public Use
  Company Number: A0804825A

PATIENT
  Age: 39 Year
  Sex: Female

DRUGS (3)
  1. TYKERB [Suspect]
     Indication: DRUG USE FOR UNKNOWN INDICATION
     Dosage: 750MGD PER DAY
     Route: 048
     Dates: start: 20090727
  2. RADIATION THERAPY [Suspect]
  3. XELODA [Suspect]

REACTIONS (3)
  - DECREASED APPETITE [None]
  - DIARRHOEA [None]
  - HEADACHE [None]
